FAERS Safety Report 7333132-9 (Version None)
Quarter: 2011Q1

REPORT INFORMATION
  Report Type: 
  Country: None (occurrence: None)
  Receive Date: 20110304
  Receipt Date: 20110221
  Transmission Date: 20110831
  Serious: Yes (Other)
  Sender: FDA-Public Use
  Company Number: DE-NAPPMUNDI-DEU-2011-0007007

PATIENT
  Sex: Female
  Weight: 73 kg

DRUGS (8)
  1. ASPIRIN [Concomitant]
     Dosage: 100 MG, DAILY
     Route: 048
  2. BISOPROLOL FUMARATE [Concomitant]
     Dosage: 2.5 MG, BID
     Route: 048
  3. AMLODIPINE BESYLATE [Concomitant]
     Dosage: 5 MG, DAILY
     Route: 048
  4. TORASEMID [Concomitant]
     Dosage: 20 MG, DAILY
     Route: 048
  5. FORMOTEROL FUMARATE [Concomitant]
     Dosage: 12 A?G, DAILY
     Route: 055
  6. DOMBOZOL [Concomitant]
     Dosage: 20 MG, DAILY
     Route: 048
  7. NORSPAN 10 UG/H [Suspect]
     Indication: PRODUCT USED FOR UNKNOWN INDICATION
     Dosage: 10 MCG, Q1H
     Route: 062
     Dates: start: 20090101
  8. ATACAND [Concomitant]
     Dosage: 16 MG, DAILY
     Route: 048

REACTIONS (1)
  - MACULAR DEGENERATION [None]
